FAERS Safety Report 21972280 (Version 1)
Quarter: 2023Q1

REPORT INFORMATION
  Report Type: Spontaneous
  Country: US (occurrence: None)
  Receive Date: 20230207
  Receipt Date: 20230207
  Transmission Date: 20230417
  Serious: No
  Sender: FDA-Public Use
  Company Number: None

PATIENT
  Age: 12 Year
  Sex: Female
  Weight: 40.5 kg

DRUGS (1)
  1. METHYLPHENIDATE HYDROCHLORIDE [Suspect]
     Active Substance: METHYLPHENIDATE HYDROCHLORIDE
     Indication: Attention deficit hyperactivity disorder
     Route: 048
     Dates: start: 20230116, end: 20230207

REACTIONS (5)
  - Product substitution issue [None]
  - Therapeutic product ineffective [None]
  - Crying [None]
  - Product dose omission in error [None]
  - Product quality issue [None]

NARRATIVE: CASE EVENT DATE: 20230116
